FAERS Safety Report 14423492 (Version 2)
Quarter: 2018Q1

REPORT INFORMATION
  Report Type: Spontaneous
  Country: US (occurrence: US)
  Receive Date: 20180123
  Receipt Date: 20180221
  Transmission Date: 20180509
  Serious: Yes (Other)
  Sender: FDA-Public Use
  Company Number: US-TEVA-2018-US-848477

PATIENT
  Sex: Female

DRUGS (3)
  1. AMLODIPINE [Concomitant]
     Active Substance: AMLODIPINE BESYLATE
  2. LEVOTHROID [Concomitant]
     Active Substance: LEVOTHYROXINE SODIUM
  3. CLOTRIMAZOLE. [Suspect]
     Active Substance: CLOTRIMAZOLE
     Indication: FUNGAL INFECTION
     Dosage: DOSE STRENGTH: 1%/0.05%, LAYER TO HANDS
     Route: 065

REACTIONS (3)
  - Haemorrhage [Not Recovered/Not Resolved]
  - Rash generalised [Not Recovered/Not Resolved]
  - Burns second degree [Not Recovered/Not Resolved]

NARRATIVE: CASE EVENT DATE: 20171215
